FAERS Safety Report 5406312-7 (Version None)
Quarter: 2007Q3

REPORT INFORMATION
  Report Type: 
  Country: None (occurrence: None)
  Receive Date: 20070806
  Receipt Date: 20070730
  Transmission Date: 20080115
  Serious: Yes (Hospitalization)
  Sender: FDA-Public Use
  Company Number: FR-SANOFI-SYNTHELABO-A01200702300

PATIENT
  Sex: Male
  Weight: 80 kg

DRUGS (4)
  1. LIPANTHYL [Concomitant]
     Indication: HYPERCHOLESTEROLAEMIA
     Route: 065
  2. KENZEN [Concomitant]
     Indication: HYPERTENSION
     Route: 065
  3. PLAVIX [Suspect]
     Indication: ANGIOPLASTY
     Route: 048
     Dates: start: 20010601, end: 20060301
  4. FONZYLANE [Concomitant]
     Indication: ARTERITIS
     Route: 065
     Dates: end: 20060301

REACTIONS (3)
  - ANAEMIA MACROCYTIC [None]
  - DUODENITIS [None]
  - MYELODYSPLASTIC SYNDROME UNCLASSIFIABLE [None]
